FAERS Safety Report 4705084-9 (Version None)
Quarter: 2005Q2

REPORT INFORMATION
  Report Type: 
  Country: None (occurrence: None)
  Receive Date: 20050629
  Receipt Date: 20040402
  Transmission Date: 20051028
  Serious: Yes (Other)
  Sender: FDA-Public Use
  Company Number: 7868

PATIENT
  Age: 48 Year
  Sex: Female

DRUGS (1)
  1. METHOTREXATE [Suspect]
     Indication: BENIGN HYDATIDIFORM MOLE

REACTIONS (4)
  - BENIGN HYDATIDIFORM MOLE [None]
  - DRUG EXPOSURE DURING PREGNANCY [None]
  - DRUG INEFFECTIVE FOR UNAPPROVED INDICATION [None]
  - GESTATIONAL TROPHOBLASTIC TUMOUR [None]
